FAERS Safety Report 6895845-2 (Version None)
Quarter: 2010Q3

REPORT INFORMATION
  Report Type: 
  Country: None (occurrence: None)
  Receive Date: 20100802
  Receipt Date: 20100729
  Transmission Date: 20110219
  Serious: Yes (Other)
  Sender: FDA-Public Use
  Company Number: DE-TEVA-243101ISR

PATIENT

DRUGS (1)
  1. CISPLATIN [Suspect]

REACTIONS (4)
  - AGRANULOCYTOSIS [None]
  - BLOOD CREATININE INCREASED [None]
  - RENAL FAILURE [None]
  - SEPSIS [None]
